FAERS Safety Report 9070967 (Version 1)
Quarter: 2013Q1

REPORT INFORMATION
  Report Type: Spontaneous
  Country: None (occurrence: US)
  Receive Date: 20130206
  Receipt Date: 20130206
  Transmission Date: 20140127
  Serious: No
  Sender: FDA-Public Use
  Company Number: US-ALLERGAN-1207373US

PATIENT
  Age: 47 Year
  Sex: Female

DRUGS (3)
  1. RESTASIS? [Suspect]
     Indication: DRY EYE
     Dosage: 2 GTT, BID
     Route: 047
     Dates: start: 201205
  2. REFRESH TEARS PLUS [Concomitant]
     Indication: DRY EYE
     Route: 047
  3. CORTISONE [Concomitant]
     Indication: SKIN DISORDER
     Route: 061

REACTIONS (3)
  - Halo vision [Recovering/Resolving]
  - Visual acuity reduced [Recovered/Resolved]
  - Vision blurred [Recovering/Resolving]
